FAERS Safety Report 23940636 (Version 1)
Quarter: 2024Q2

REPORT INFORMATION
  Report Type: Spontaneous
  Country: US (occurrence: US)
  Receive Date: 20240605
  Receipt Date: 20240605
  Transmission Date: 20240716
  Serious: No
  Sender: FDA-Public Use
  Company Number: US-ALKEM LABORATORIES LIMITED-US-ALKEM-2024-04601

PATIENT
  Age: 26 Year
  Sex: Male

DRUGS (2)
  1. VANCOMYCIN [Suspect]
     Active Substance: VANCOMYCIN
     Indication: Pneumonia staphylococcal
     Dosage: 1500MILLIGRAM (25MILLIGRAM/KILOGRAM, DOSING WEIGHT OF 60 KILOGRAM) (TID)
     Route: 042
  2. VANCOMYCIN [Suspect]
     Active Substance: VANCOMYCIN
     Indication: Pleural effusion

REACTIONS (3)
  - Drug level below therapeutic [Unknown]
  - Therapy partial responder [Unknown]
  - Treatment failure [Unknown]
